FAERS Safety Report 7138649-8 (Version None)
Quarter: 2010Q4

REPORT INFORMATION
  Report Type: 
  Country: None (occurrence: None)
  Receive Date: 20101206
  Receipt Date: 20101124
  Transmission Date: 20110411
  Serious: Yes (Hospitalization, Other)
  Sender: FDA-Public Use
  Company Number: US-MERCK-0906USA03279

PATIENT
  Age: 41 Year
  Sex: Female

DRUGS (2)
  1. FOSAMAX [Suspect]
     Indication: OSTEOPOROSIS
     Route: 048
  2. FOSAMAX [Suspect]
     Route: 048
     Dates: start: 20010901, end: 20060804

REACTIONS (21)
  - ABDOMINAL DISCOMFORT [None]
  - ADJUSTMENT DISORDER [None]
  - ANHEDONIA [None]
  - BLOOD TRIGLYCERIDES INCREASED [None]
  - BONE DENSITY DECREASED [None]
  - BREAST CYST [None]
  - BREAST MASS [None]
  - CRYING [None]
  - DERMATITIS [None]
  - DRUG HYPERSENSITIVITY [None]
  - DRUG INEFFECTIVE [None]
  - DYSHIDROSIS [None]
  - EATING DISORDER [None]
  - EMOTIONAL DISORDER [None]
  - ERYSIPELAS [None]
  - INSOMNIA [None]
  - MELANOCYTIC NAEVUS [None]
  - MUSCLE STRAIN [None]
  - OSTEONECROSIS OF JAW [None]
  - STRESS [None]
  - TREMOR [None]
